FAERS Safety Report 20548579 (Version 2)
Quarter: 2022Q1

REPORT INFORMATION
  Report Type: Spontaneous
  Country: US (occurrence: US)
  Receive Date: 20220303
  Receipt Date: 20220321
  Transmission Date: 20220423
  Serious: Yes (Other)
  Sender: FDA-Public Use
  Company Number: US-TEVA-2022-US-2011763

PATIENT
  Sex: Female

DRUGS (3)
  1. TRIAMCINOLONE [Suspect]
     Active Substance: TRIAMCINOLONE
     Indication: Morphoea
     Dosage: .2 PERCENT DAILY;
     Route: 061
  2. CALCIPOTRIENE [Suspect]
     Active Substance: CALCIPOTRIENE
     Indication: Morphoea
     Dosage: .01 PERCENT DAILY;
     Route: 061
  3. APREMILAST [Suspect]
     Active Substance: APREMILAST
     Indication: Morphoea
     Dosage: 60 MILLIGRAM DAILY;
     Route: 048

REACTIONS (3)
  - Nausea [Unknown]
  - Drug ineffective [Unknown]
  - Off label use [Unknown]
